FAERS Safety Report 6130595-1 (Version None)
Quarter: 2009Q1

REPORT INFORMATION
  Report Type: 
  Country: None (occurrence: None)
  Receive Date: 20090325
  Receipt Date: 20090316
  Transmission Date: 20090719
  Serious: Yes (Hospitalization)
  Sender: FDA-Public Use
  Company Number: DE-RANBAXY-2009RR-22832

PATIENT
  Age: 19 Year
  Sex: Male
  Weight: 78 kg

DRUGS (5)
  1. RANITIDINE [Suspect]
     Indication: REFLUX OESOPHAGITIS
     Dosage: 150 MG, QD
     Route: 048
     Dates: start: 20010101, end: 20081210
  2. IBUPROFEN TABLETS [Suspect]
     Indication: MIGRAINE
     Dosage: 400 MG, UNK
     Route: 048
     Dates: end: 20081208
  3. LAMOTRIGINE [Suspect]
     Indication: EPILEPSY
     Dosage: 100 MG, BID
     Route: 048
     Dates: start: 20081110, end: 20081210
  4. PANTOZOL [Suspect]
     Indication: REFLUX OESOPHAGITIS
     Dosage: 20 MG, QD
     Route: 048
     Dates: start: 20010101, end: 20081210
  5. ERGENYL CHRONO [Suspect]
     Indication: EPILEPSY
     Dosage: 500 MG, QD
     Route: 048
     Dates: start: 20070501

REACTIONS (1)
  - PYREXIA [None]
